FAERS Safety Report 5927151-4 (Version None)
Quarter: 2008Q4

REPORT INFORMATION
  Report Type: 
  Country: None (occurrence: None)
  Receive Date: 20081022
  Receipt Date: 20081010
  Transmission Date: 20090506
  Serious: Yes (Other)
  Sender: FDA-Public Use
  Company Number: US-PFIZER INC-2007069577

PATIENT
  Sex: Female
  Weight: 45.4 kg

DRUGS (4)
  1. LYRICA [Suspect]
     Indication: FIBROMYALGIA
     Dates: start: 20070101
  2. PAXIL [Concomitant]
  3. VICODIN [Concomitant]
  4. LORAZEPAM [Concomitant]

REACTIONS (1)
  - JOINT SWELLING [None]
